FAERS Safety Report 14741933 (Version 3)
Quarter: 2018Q2

REPORT INFORMATION
  Report Type: Spontaneous
  Country: VN (occurrence: VN)
  Receive Date: 20180410
  Receipt Date: 20180611
  Transmission Date: 20180711
  Serious: Yes (Other)
  Sender: FDA-Public Use
  Company Number: PHHY2018VN062510

PATIENT
  Age: 41 Year
  Sex: Female

DRUGS (5)
  1. FRAIZERON [Suspect]
     Active Substance: SECUKINUMAB
     Dosage: 150 MG, QW
     Route: 058
  2. FRAIZERON [Suspect]
     Active Substance: SECUKINUMAB
     Indication: ANKYLOSING SPONDYLITIS
     Dosage: 150 MG, QW
     Route: 058
     Dates: start: 20171030
  3. FRAIZERON [Suspect]
     Active Substance: SECUKINUMAB
     Dosage: 150 MG, QMO
     Route: 058
     Dates: end: 20180330
  4. FRAIZERON [Suspect]
     Active Substance: SECUKINUMAB
     Dosage: 150 MG, QW
     Route: 058
  5. FRAIZERON [Suspect]
     Active Substance: SECUKINUMAB
     Dosage: 150 MG, QW
     Route: 058

REACTIONS (5)
  - Joint swelling [Unknown]
  - Uveitis [Unknown]
  - Arthralgia [Unknown]
  - Therapy non-responder [Unknown]
  - Iritis [Unknown]

NARRATIVE: CASE EVENT DATE: 20180330
